FAERS Safety Report 6652961-8 (Version None)
Quarter: 2010Q1

REPORT INFORMATION
  Report Type: 
  Country: None (occurrence: None)
  Receive Date: 20100326
  Receipt Date: 20100315
  Transmission Date: 20100710
  Serious: Yes (Other)
  Sender: FDA-Public Use
  Company Number: PHHY2010PL15962

PATIENT
  Sex: Male

DRUGS (5)
  1. METOPROLOL [Suspect]
     Dosage: UNK
     Route: 064
  2. DIHYDRALAZINE [Suspect]
     Dosage: UNK
     Route: 064
  3. MAGNESIUM SULFATE [Suspect]
     Dosage: UNK
     Route: 064
  4. DIAZEPAM [Suspect]
     Dosage: UNK
     Route: 064
  5. METHYLDOPA [Suspect]
     Dosage: UNK
     Route: 064

REACTIONS (5)
  - DRUG EXPOSURE DURING PREGNANCY [None]
  - LOCALISED INTRAABDOMINAL FLUID COLLECTION [None]
  - PREMATURE BABY [None]
  - SKIN OEDEMA [None]
  - SMALL FOR DATES BABY [None]
